FAERS Safety Report 10979271 (Version 1)
Quarter: 2015Q1

REPORT INFORMATION
  Report Type: Spontaneous
  Country: US (occurrence: None)
  Receive Date: 20150226
  Receipt Date: 20150226
  Transmission Date: 20150721
  Serious: Yes (Other)
  Sender: FDA-Public Use
  Company Number: TPA2013A04825

PATIENT
  Age: 52 Year
  Sex: Male
  Weight: 111.1 kg

DRUGS (3)
  1. ACTOS [Suspect]
     Active Substance: PIOGLITAZONE HYDROCHLORIDE
     Indication: TYPE 2 DIABETES MELLITUS
     Dates: start: 20030305, end: 20030508
  2. BYETTA (EXENATIDE) [Concomitant]
  3. JANUMET (JANUMET) [Concomitant]

REACTIONS (2)
  - Bladder transitional cell carcinoma [None]
  - Cystitis [None]

NARRATIVE: CASE EVENT DATE: 20030611
